FAERS Safety Report 8091175-4 (Version None)
Quarter: 2012Q1

REPORT INFORMATION
  Report Type: 
  Country: None (occurrence: None)
  Receive Date: 20120129
  Receipt Date: 20110929
  Transmission Date: 20120608
  Serious: No
  Sender: FDA-Public Use
  Company Number: US-ABBOTT-11P-163-0859666-00

PATIENT
  Sex: Female

DRUGS (13)
  1. FOLIC ACID [Concomitant]
     Indication: VITAMIN SUPPLEMENTATION
  2. CLEOSIN [Concomitant]
     Indication: PRODUCT USED FOR UNKNOWN INDICATION
  3. METHOTREXATE [Concomitant]
     Indication: RHEUMATOID ARTHRITIS
  4. CELEBREX [Concomitant]
     Indication: RHEUMATOID ARTHRITIS
  5. TYLENOL W/ CODEINE NO. 3 [Concomitant]
     Indication: ARTHRALGIA
  6. HUMIRA [Suspect]
     Indication: RHEUMATOID ARTHRITIS
     Route: 058
     Dates: start: 20020101
  7. VASOTEC [Concomitant]
     Indication: HYPERTENSION
  8. ASPIRIN [Concomitant]
     Indication: PROPHYLAXIS
  9. RECLAST [Concomitant]
     Indication: PRODUCT USED FOR UNKNOWN INDICATION
     Route: 042
  10. MIRAPEX [Concomitant]
     Indication: RESTLESS LEGS SYNDROME
  11. PLAVIX [Concomitant]
     Indication: TRANSIENT ISCHAEMIC ATTACK
  12. NORVASC [Concomitant]
     Indication: HYPERTENSION
  13. PROTONIX [Concomitant]
     Indication: GASTROOESOPHAGEAL REFLUX DISEASE

REACTIONS (1)
  - ARTHRITIS [None]
